FAERS Safety Report 15223984 (Version 1)
Quarter: 2018Q3

REPORT INFORMATION
  Report Type: Spontaneous
  Country: US (occurrence: US)
  Receive Date: 20180731
  Receipt Date: 20180731
  Transmission Date: 20181010
  Serious: No
  Sender: FDA-Public Use
  Company Number: US-009507513-1807USA013256

PATIENT
  Age: 28 Year
  Sex: Female

DRUGS (3)
  1. OMALIZUMAB. [Concomitant]
     Active Substance: OMALIZUMAB
     Indication: MAST CELL ACTIVATION SYNDROME
  2. SINGULAIR [Suspect]
     Active Substance: MONTELUKAST SODIUM
     Indication: MAST CELL ACTIVATION SYNDROME
     Dosage: UNK
     Route: 048
  3. CROMOLYN [Concomitant]
     Active Substance: CROMOLYN
     Indication: MAST CELL ACTIVATION SYNDROME

REACTIONS (1)
  - Product use in unapproved indication [Unknown]
